FAERS Safety Report 6554104-8 (Version None)
Quarter: 2010Q1

REPORT INFORMATION
  Report Type: 
  Country: None (occurrence: None)
  Receive Date: 20100125
  Receipt Date: 20100125
  Transmission Date: 20100710
  Serious: Yes (Hospitalization)
  Sender: FDA-Public Use
  Company Number: None

PATIENT
  Age: 78 Year
  Sex: Female
  Weight: 73 kg

DRUGS (10)
  1. WARFARIN SODIUM [Suspect]
     Indication: ANTICOAGULANT THERAPY
     Dosage: UNKNOWN DAILY PO PRIOR TO ADMISSION
     Route: 048
  2. WARFARIN SODIUM [Suspect]
     Indication: POSTOPERATIVE CARE
     Dosage: UNKNOWN DAILY PO PRIOR TO ADMISSION
     Route: 048
  3. SENNA-S [Concomitant]
  4. GLIPIZIDE [Concomitant]
  5. INSULIN SLIDING SCALE [Concomitant]
  6. LEVOTHYROXINE SODIUM [Concomitant]
  7. LISINOPRIL [Concomitant]
  8. METOPROLOL [Concomitant]
  9. OXYCODONE HCL EXTENDED-RELEASE [Concomitant]
  10. TOLTERODINE LA [Concomitant]

REACTIONS (2)
  - HAEMATURIA [None]
  - INTERNATIONAL NORMALISED RATIO INCREASED [None]
